FAERS Safety Report 12395602 (Version 2)
Quarter: 2016Q2

REPORT INFORMATION
  Report Type: Spontaneous
  Country: US (occurrence: US)
  Receive Date: 20160523
  Receipt Date: 20160613
  Transmission Date: 20160815
  Serious: Yes (Other)
  Sender: FDA-Public Use
  Company Number: US-009507513-1605USA008944

PATIENT
  Sex: Female
  Weight: 60.77 kg

DRUGS (2)
  1. NEXPLANON [Suspect]
     Active Substance: ETONOGESTREL
     Indication: CONTRACEPTION
     Dosage: UNK
     Route: 059
     Dates: start: 20160422, end: 20160518
  2. NEXPLANON [Suspect]
     Active Substance: ETONOGESTREL
     Dosage: INSERTED ON OPPOSITE ARM
     Route: 059
     Dates: start: 20160518

REACTIONS (3)
  - Device dislocation [Recovered/Resolved]
  - Device expulsion [Recovered/Resolved]
  - Medical device site discomfort [Unknown]
